FAERS Safety Report 4818908-1 (Version None)
Quarter: 2005Q4

REPORT INFORMATION
  Report Type: 
  Country: None (occurrence: None)
  Receive Date: 20051101
  Receipt Date: 20051017
  Transmission Date: 20060501
  Serious: Yes (Hospitalization)
  Sender: FDA-Public Use
  Company Number: 2005110054

PATIENT
  Age: 36 Year
  Sex: Male

DRUGS (2)
  1. SALAZOPYRINE (SULFASALAZINE) [Suspect]
     Indication: SPONDYLITIS
     Dosage: ORAL
     Route: 048
     Dates: start: 20040915, end: 20050628
  2. PIROXICAM [Suspect]
     Indication: SPONDYLITIS
     Dosage: ORAL
     Route: 048
     Dates: start: 20050315, end: 20050628

REACTIONS (15)
  - ANKYLOSING SPONDYLITIS [None]
  - ARTHRALGIA [None]
  - BONE PAIN [None]
  - COLITIS ULCERATIVE [None]
  - COUGH [None]
  - DIARRHOEA [None]
  - DYSPNOEA [None]
  - ENTEROCOLITIS HAEMORRHAGIC [None]
  - EOSINOPHILIA [None]
  - HYPERSENSITIVITY [None]
  - INFLAMMATION [None]
  - LYMPHADENOPATHY [None]
  - PARVOVIRUS B19 SEROLOGY POSITIVE [None]
  - PROCTITIS HAEMORRHAGIC [None]
  - PYREXIA [None]
